FAERS Safety Report 5867360-6 (Version None)
Quarter: 2008Q3

REPORT INFORMATION
  Report Type: 
  Country: None (occurrence: None)
  Receive Date: 20080902
  Receipt Date: 20080826
  Transmission Date: 20090109
  Serious: Yes (Other)
  Sender: FDA-Public Use
  Company Number: PHEH2006US08085

PATIENT
  Sex: Female
  Weight: 61.224 kg

DRUGS (10)
  1. AREDIA [Suspect]
  2. FEMARA [Concomitant]
     Dosage: 2.5 MG, UNK
  3. KLOR-CON [Concomitant]
     Dosage: 10 MEQ, UNK
  4. FUROSEMIDE [Concomitant]
     Dosage: 20 MG, UNK
  5. TAZTIA XT [Concomitant]
     Dosage: 360 MG, UNK
  6. MECLIZINE [Concomitant]
     Dosage: 25 MG, UNK
  7. VITAMIN B-12 [Concomitant]
  8. SINGULAIR [Concomitant]
     Dosage: 10 MG, UNK
  9. ZOLOFT [Concomitant]
     Dosage: 50 MG, UNK
  10. OXYCODONE HCL [Concomitant]
     Dosage: 5 MG, UNK

REACTIONS (11)
  - ANXIETY [None]
  - BONE DEBRIDEMENT [None]
  - BONE DISORDER [None]
  - BONE OPERATION [None]
  - DECREASED INTEREST [None]
  - EXOSTOSIS [None]
  - GENERAL PHYSICAL HEALTH DETERIORATION [None]
  - ORAL PAIN [None]
  - OSTEONECROSIS [None]
  - PAIN [None]
  - PAIN IN JAW [None]
